FAERS Safety Report 18399379 (Version 8)
Quarter: 2021Q4

REPORT INFORMATION
  Report Type: Spontaneous
  Country: US (occurrence: US)
  Receive Date: 20201019
  Receipt Date: 20211006
  Transmission Date: 20220303
  Serious: Yes (Other)
  Sender: FDA-Public Use
  Company Number: US-PFIZER INC-2020184724

PATIENT
  Age: 54 Year
  Sex: Male
  Weight: 70.31 kg

DRUGS (1)
  1. LYRICA [Suspect]
     Active Substance: PREGABALIN
     Indication: Mast cell activation syndrome
     Dosage: 100 MG, 3X/DAY
     Route: 048
     Dates: start: 2017

REACTIONS (10)
  - Anaphylactic shock [Unknown]
  - Spinal fracture [Unknown]
  - Hypersomnia [Unknown]
  - Off label use [Unknown]
  - Gait disturbance [Unknown]
  - Allergic reaction to excipient [Unknown]
  - Illness [Unknown]
  - Pain [Unknown]
  - Bedridden [Unknown]
  - Temperature intolerance [Unknown]

NARRATIVE: CASE EVENT DATE: 20170101
